FAERS Safety Report 4590552-3 (Version None)
Quarter: 2005Q1

REPORT INFORMATION
  Report Type: 
  Country: None (occurrence: None)
  Receive Date: 20050216
  Receipt Date: 20050124
  Transmission Date: 20050727
  Serious: Yes (Other)
  Sender: FDA-Public Use
  Company Number: 200410231BFR

PATIENT
  Age: 8 Year
  Sex: Male
  Weight: 23 kg

DRUGS (40)
  1. KOGENATE FS [Suspect]
     Indication: FACTOR VIII DEFICIENCY
     Dosage: 1000 IU, TOTAL DAILY, INTRAVEN
     Route: 042
     Dates: start: 20040115
  2. KOGENATE FS [Suspect]
     Dosage: 1000 IU, TOTAL DAILY, INTRAVEN
     Route: 042
     Dates: end: 20040408
  3. KOGENATE FS [Suspect]
     Dosage: 1000 IU, TOTAL DAILY, INTRAVEN
     Route: 042
     Dates: start: 20040409
  4. KOGENATE FS [Suspect]
     Dosage: 1000 IU, TOTAL DAILY, INTRAVEN
     Route: 042
     Dates: start: 20040412
  5. KOGENATE FS [Suspect]
     Dosage: 1000 IU, TOTAL DAILY, INTRAVEN
     Route: 042
     Dates: start: 20040413
  6. KOGENATE FS [Suspect]
     Dosage: 1000 IU, TOTAL DAILY, INTRAVEN
     Route: 042
     Dates: start: 20040415
  7. KOGENATE FS [Suspect]
     Dosage: 1000 IU, TOTAL DAILY, INTRAVEN
     Route: 042
     Dates: start: 20040417
  8. KOGENATE FS [Suspect]
     Dosage: 1000 IU, TOTAL DAILY, INTRAVEN
     Route: 042
     Dates: start: 20040419
  9. KOGENATE FS [Suspect]
     Dosage: 1000 IU, TOTAL DAILY, INTRAVEN
     Route: 042
     Dates: start: 20040421
  10. KOGENATE FS [Suspect]
     Dosage: 1000 IU, TOTAL DAILY, INTRAVEN
     Route: 042
     Dates: start: 20040422
  11. KOGENATE FS [Suspect]
     Dosage: 1000 IU, TOTAL DAILY, INTRAVEN
     Route: 042
     Dates: start: 20040424
  12. KOGENATE FS [Suspect]
     Dosage: 1000 IU, TOTAL DAILY, INTRAVEN
     Route: 042
     Dates: start: 20040428
  13. KOGENATE FS [Suspect]
     Dosage: 1000 IU, TOTAL DAILY, INTRAVEN
     Route: 042
     Dates: start: 20040502
  14. KOGENATE FS [Suspect]
     Dosage: 1000 IU, TOTAL DAILY, INTRAVEN
     Route: 042
     Dates: start: 20040503
  15. KOGENATE FS [Suspect]
     Dosage: 1000 IU, TOTAL DAILY, INTRAVEN
     Route: 042
     Dates: start: 20040506
  16. KOGENATE FS [Suspect]
     Dosage: 1000 IU, TOTAL DAILY, INTRAVEN
     Route: 042
     Dates: start: 20040510
  17. KOGENATE FS [Suspect]
     Dosage: 1000 IU, TOTAL DAILY, INTRAVEN
     Route: 042
     Dates: start: 20040313
  18. KOGENATE FS [Suspect]
     Dosage: 1000 IU, TOTAL DAILY, INTRAVEN
     Route: 042
     Dates: start: 20040517
  19. KOGENATE FS [Suspect]
     Dosage: 1000 IU, TOTAL DAILY, INTRAVEN
     Route: 042
     Dates: start: 20040519, end: 20040520
  20. KOGENATE FS [Suspect]
     Dosage: 1000 IU, TOTAL DAILY, INTRAVEN
     Route: 042
     Dates: start: 20040524
  21. KOGENATE FS [Suspect]
     Dosage: 1000 IU, TOTAL DAILY, INTRAVEN
     Route: 042
     Dates: start: 20040527
  22. KOGENATE FS [Suspect]
     Dosage: 1000 IU, TOTAL DAILY, INTRAVEN
     Route: 042
     Dates: start: 20040531
  23. KOGENATE FS [Suspect]
     Dosage: 1000 IU, TOTAL DAILY, INTRAVEN
     Route: 042
     Dates: start: 20040603
  24. KOGENATE FS [Suspect]
     Dosage: 1000 IU, TOTAL DAILY, INTRAVEN
     Route: 042
     Dates: start: 20040607
  25. KOGENATE FS [Suspect]
     Dosage: 1000 IU, TOTAL DAILY, INTRAVEN
     Route: 042
     Dates: start: 20040610
  26. KOGENATE FS [Suspect]
     Dosage: 1000 IU, TOTAL DAILY, INTRAVEN
     Route: 042
     Dates: start: 20040614
  27. KOGENATE FS [Suspect]
     Dosage: 1000 IU, TOTAL DAILY, INTRAVEN
     Route: 042
     Dates: start: 20040616, end: 20040619
  28. KOGENATE FS [Suspect]
     Dosage: 1000 IU, TOTAL DAILY, INTRAVEN
     Route: 042
     Dates: start: 20040621
  29. KOGENATE FS [Suspect]
     Dosage: 1000 IU, TOTAL DAILY, INTRAVEN
     Route: 042
     Dates: start: 20040623
  30. KOGENATE FS [Suspect]
     Dosage: 1000 IU, TOTAL DAILY, INTRAVEN
     Route: 042
     Dates: start: 20040625
  31. KOGENATE FS [Suspect]
     Dosage: 1000 IU, TOTAL DAILY, INTRAVEN
     Route: 042
     Dates: start: 20040628
  32. KOGENATE FS [Suspect]
     Dosage: 1000 IU, TOTAL DAILY, INTRAVEN
     Route: 042
     Dates: start: 20040701
  33. KOGENATE FS [Suspect]
     Dosage: 1000 IU, TOTAL DAILY, INTRAVEN
     Route: 042
     Dates: start: 20040705
  34. KOGENATE FS [Suspect]
     Dosage: 1000 IU, TOTAL DAILY, INTRAVEN
     Route: 042
     Dates: start: 20040708
  35. KOGENATE FS [Suspect]
     Dosage: 1000 IU, TOTAL DAILY, INTRAVEN
     Route: 042
     Dates: start: 20040712
  36. KOGENATE FS [Suspect]
     Dosage: 1000 IU, TOTAL DAILY, INTRAVEN
     Route: 042
     Dates: start: 20040715
  37. KOGENATE FS [Suspect]
     Dosage: 1000 IU, TOTAL DAILY, INTRAVEN
     Route: 042
     Dates: start: 20040719
  38. KOGENATE FS [Suspect]
     Dosage: 1000 IU, TOTAL DAILY, INTRAVEN
     Route: 042
     Dates: start: 20040722
  39. KOGENATE FS [Suspect]
     Dosage: 1000 IU, TOTAL DAILY, INTRAVEN
     Route: 042
     Dates: start: 20040726
  40. KOGENATE FS [Suspect]
     Dosage: 1000 IU, TOTAL DAILY, INTRAVEN
     Route: 042
     Dates: start: 20040729

REACTIONS (6)
  - DRUG INEFFECTIVE [None]
  - HAEMATOMA [None]
  - MEDICATION ERROR [None]
  - PAIN [None]
  - PHARMACEUTICAL PRODUCT COMPLAINT [None]
  - TOE AMPUTATION [None]
